FAERS Safety Report 8209261-4 (Version None)
Quarter: 2012Q1

REPORT INFORMATION
  Report Type: 
  Country: None (occurrence: None)
  Receive Date: 20120314
  Receipt Date: 20120228
  Transmission Date: 20120608
  Serious: No
  Sender: FDA-Public Use
  Company Number: US-BAYER-2012-021077

PATIENT
  Sex: Female
  Weight: 63 kg

DRUGS (5)
  1. GLUCOSAMINE SULFATE W/CHONDROITIN [Concomitant]
  2. ALEVE (CAPLET) [Suspect]
     Indication: ARTHRITIS
     Dosage: 2 DF (TABLETS) QD
     Route: 048
     Dates: start: 20090101
  3. VITAMIN E [Concomitant]
  4. LIPITOR [Concomitant]
  5. CALCIUM [Concomitant]

REACTIONS (1)
  - NO ADVERSE EVENT [None]
